FAERS Safety Report 5402575-2 (Version None)
Quarter: 2007Q3

REPORT INFORMATION
  Report Type: 
  Country: None (occurrence: None)
  Receive Date: 20070801
  Receipt Date: 20070105
  Transmission Date: 20080115
  Serious: No
  Sender: FDA-Public Use
  Company Number: A0634487A

PATIENT
  Age: 53 Year
  Sex: Female

DRUGS (4)
  1. IMITREX [Suspect]
     Indication: MIGRAINE
     Dosage: 100MG AS REQUIRED
     Route: 048
     Dates: start: 20070105
  2. ALLEGRA D 24 HOUR [Concomitant]
  3. TOPAMAX [Concomitant]
  4. BUPROPION HCL [Concomitant]

REACTIONS (3)
  - DRUG DISPENSING ERROR [None]
  - DRUG EFFECT DECREASED [None]
  - THERAPEUTIC RESPONSE DELAYED [None]
